FAERS Safety Report 18864725 (Version 1)
Quarter: 2021Q1

REPORT INFORMATION
  Report Type: Spontaneous
  Country: US (occurrence: US)
  Receive Date: 20210208
  Receipt Date: 20210208
  Transmission Date: 20210420
  Serious: Yes (Hospitalization)
  Sender: FDA-Public Use
  Company Number: None

PATIENT
  Sex: Female

DRUGS (8)
  1. ATORVASTATIN [Suspect]
     Active Substance: ATORVASTATIN
  2. CARVEDILOL. [Suspect]
     Active Substance: CARVEDILOL
  3. CEFDINIR. [Suspect]
     Active Substance: CEFDINIR
  4. NYSTOP [Suspect]
     Active Substance: NYSTATIN
  5. FLUCONAZOLE. [Suspect]
     Active Substance: FLUCONAZOLE
  6. SERTRALINE [Suspect]
     Active Substance: SERTRALINE HYDROCHLORIDE
  7. SILDENAFIL 20MG TAB [Suspect]
     Active Substance: SILDENAFIL
     Indication: PULMONARY ARTERIAL HYPERTENSION
     Dosage: ?          OTHER DOSE:1 TAB;?
     Route: 048
     Dates: start: 20201126
  8. CIPROFLOXACN [Suspect]
     Active Substance: CIPROFLOXACIN

REACTIONS (2)
  - Intentional dose omission [None]
  - Musculoskeletal chest pain [None]
